FAERS Safety Report 19841056 (Version 7)
Quarter: 2022Q1

REPORT INFORMATION
  Report Type: Spontaneous
  Country: US (occurrence: US)
  Receive Date: 20210915
  Receipt Date: 20220331
  Transmission Date: 20220424
  Serious: Yes (Other)
  Sender: FDA-Public Use
  Company Number: US-PFIZER INC-202101176301

PATIENT
  Age: 69 Year
  Sex: Female

DRUGS (1)
  1. IBRANCE [Suspect]
     Active Substance: PALBOCICLIB
     Dosage: 125 MG, UNK

REACTIONS (7)
  - Multiple sclerosis [Unknown]
  - Foot fracture [Unknown]
  - Glossodynia [Unknown]
  - Gingival pain [Unknown]
  - Stomatitis [Unknown]
  - Hypersensitivity [Unknown]
  - Gingival swelling [Unknown]
